FAERS Safety Report 11924092 (Version 1)
Quarter: 2016Q1

REPORT INFORMATION
  Report Type: Report from Study
  Country: BR (occurrence: BR)
  Receive Date: 20160118
  Receipt Date: 20160118
  Transmission Date: 20160526
  Serious: Yes (Hospitalization)
  Sender: FDA-Public Use
  Company Number: BR-ABBVIE-16K-020-1535272-00

PATIENT
  Age: 72 Year
  Sex: Female
  Weight: 53 kg

DRUGS (4)
  1. LEXOTAN [Concomitant]
     Active Substance: BROMAZEPAM
     Indication: SEDATIVE THERAPY
     Route: 048
     Dates: start: 2006
  2. HUMIRA [Suspect]
     Active Substance: ADALIMUMAB
     Indication: RHEUMATOID ARTHRITIS
     Route: 058
     Dates: start: 20141107, end: 201511
  3. DIOVAN [Concomitant]
     Active Substance: VALSARTAN
     Indication: HYPERTENSION
     Route: 048
  4. PROCORALAN [Concomitant]
     Active Substance: IVABRADINE
     Indication: CARDIAC DISORDER
     Route: 048
     Dates: start: 2012

REACTIONS (9)
  - Visual impairment [Recovering/Resolving]
  - Syncope [Recovering/Resolving]
  - Hypersensitivity [Recovered/Resolved]
  - Diabetes mellitus [Recovering/Resolving]
  - Rheumatoid arthritis [Not Recovered/Not Resolved]
  - Rash generalised [Recovered/Resolved]
  - Head injury [Recovering/Resolving]
  - Weight decreased [Not Recovered/Not Resolved]
  - General physical health deterioration [Unknown]

NARRATIVE: CASE EVENT DATE: 2015
